FAERS Safety Report 8813952 (Version 1)
Quarter: 2012Q4

REPORT INFORMATION
  Report Type: Report from Study
  Country: JP (occurrence: JP)
  Receive Date: 20120928
  Receipt Date: 20120928
  Transmission Date: 20130627
  Serious: Yes (Life-Threatening, Other)
  Sender: FDA-Public Use
  Company Number: JP-009507513-1209JPN009279

PATIENT
  Age: 67 Year
  Sex: Male
  Weight: 72 kg

DRUGS (10)
  1. PEGINTRON [Suspect]
     Indication: HEPATITIS C
     Dosage: 1.5 Microgram per kilogram, UNK
     Route: 058
     Dates: start: 20120717
  2. PEGINTRON [Suspect]
     Dosage: 1.39 Microgram per kilogram, UNK
     Route: 058
     Dates: start: 20120806
  3. PEGINTRON [Suspect]
     Dosage: 0.7 Microgram per kilogram, UNK
     Route: 058
     Dates: start: 20120813
  4. PEGINTRON [Suspect]
     Dosage: 0.8 Microgram per kilogram, UNK
     Route: 058
     Dates: start: 20120820
  5. REBETOL [Suspect]
     Indication: HEPATITIS C
     Dosage: 800 mg, qd
     Route: 048
     Dates: start: 20120717
  6. REBETOL [Suspect]
     Dosage: 400 mg, qd
     Route: 048
     Dates: start: 20120820
  7. TELAVIC [Suspect]
     Indication: HEPATITIS C
     Dosage: 2250 milligrams, qd
     Route: 048
     Dates: start: 20120717
  8. TELAVIC [Suspect]
     Dosage: 1500 milligrams, qd
     Route: 048
     Dates: start: 20120720
  9. LORFENAMIN [Concomitant]
     Indication: HEPATITIS C
     Dosage: 60 mg,as needed
     Route: 048
     Dates: start: 20120719
  10. SALOBEL [Concomitant]
     Indication: BLOOD URIC ACID INCREASED
     Dosage: 1 DF, qd
     Route: 048
     Dates: start: 20120809

REACTIONS (2)
  - Renal impairment [Recovering/Resolving]
  - Rash [Unknown]
